FAERS Safety Report 21770313 (Version 1)
Quarter: 2022Q4

REPORT INFORMATION
  Report Type: Spontaneous
  Country: CN (occurrence: CN)
  Receive Date: 20221223
  Receipt Date: 20221223
  Transmission Date: 20230113
  Serious: Yes (Life-Threatening, Hospitalization, Other)
  Sender: FDA-Public Use
  Company Number: CN-STERISCIENCE B.V.-2022-ST-000350

PATIENT
  Age: 49 Year
  Sex: Male
  Weight: 69 kg

DRUGS (12)
  1. MIDAZOLAM [Suspect]
     Active Substance: MIDAZOLAM
     Indication: General anaesthesia
     Dosage: 2 MILLIGRAM
     Route: 042
  2. SUFENTANIL [Suspect]
     Active Substance: SUFENTANIL
     Indication: General anaesthesia
     Dosage: 25 MICROGRAM FOR INDUCTION OF GENERAL ANAESTHESIA
     Route: 065
  3. SUFENTANIL [Suspect]
     Active Substance: SUFENTANIL
     Dosage: UNK; MAINTENANCE OF GENERAL ANAESTHESIA
     Route: 065
  4. ETOMIDATE [Suspect]
     Active Substance: ETOMIDATE
     Indication: General anaesthesia
     Dosage: 14 MILLIGRAM
     Route: 065
  5. ROCURONIUM BROMIDE [Suspect]
     Active Substance: ROCURONIUM BROMIDE
     Indication: General anaesthesia
     Dosage: 60 MILLIGRAM; INDUCTION
     Route: 065
  6. ROCURONIUM BROMIDE [Suspect]
     Active Substance: ROCURONIUM BROMIDE
     Dosage: UNK; MAINTENANCE
     Route: 065
  7. SEVOFLURANE [Suspect]
     Active Substance: SEVOFLURANE
     Indication: General anaesthesia
     Dosage: UNK
  8. PROPOFOL [Concomitant]
     Active Substance: PROPOFOL
     Indication: General anaesthesia
     Dosage: UNK
     Route: 065
  9. DOBUTAMINE [Concomitant]
     Active Substance: DOBUTAMINE HYDROCHLORIDE
     Indication: Supportive care
     Dosage: UNK
     Route: 042
  10. MILRINONE [Concomitant]
     Active Substance: MILRINONE
     Indication: Supportive care
     Dosage: UNK
     Route: 042
  11. HEPARIN [Concomitant]
     Active Substance: HEPARIN SODIUM
     Indication: Anticoagulant therapy
     Dosage: UNK
     Route: 065
  12. PROTAMINE [PROTAMINE SULFATE] [Concomitant]
     Indication: Anticoagulant therapy
     Dosage: UNK
     Route: 065

REACTIONS (1)
  - Hyperthermia malignant [Recovered/Resolved]
